FAERS Safety Report 9936810 (Version 2)
Quarter: 2014Q2

REPORT INFORMATION
  Report Type: Spontaneous
  Country: US (occurrence: None)
  Receive Date: 20140109
  Receipt Date: 20140409
  Transmission Date: 20141212
  Serious: No
  Sender: FDA-Public Use
  Company Number: PHEH2013US020298

PATIENT
  Age: 61 Year
  Sex: Male
  Weight: 57.1 kg

DRUGS (3)
  1. SIGNIFOR (PASIREOTIDE) UNKNOWN [Suspect]
     Indication: CUSHING^S SYNDROME
     Route: 058
     Dates: start: 20130922
  2. DEXAMETHASONE (DEXAMETHASONE) [Concomitant]
  3. TEMODAL (TEMOZOLOMIDE) [Concomitant]

REACTIONS (3)
  - Haematochezia [None]
  - Haemorrhoids [None]
  - Rectal haemorrhage [None]
